FAERS Safety Report 8011275-4 (Version None)
Quarter: 2011Q4

REPORT INFORMATION
  Report Type: 
  Country: None (occurrence: None)
  Receive Date: 20111227
  Receipt Date: 20111227
  Transmission Date: 20120403
  Serious: Yes (Life-Threatening, Hospitalization)
  Sender: FDA-Public Use
  Company Number: None

PATIENT
  Age: 38 Year
  Sex: Female
  Weight: 65.77 kg

DRUGS (1)
  1. YAZ [Suspect]
     Indication: CONTRACEPTION
     Dosage: TAB
     Dates: start: 20100910, end: 20111215

REACTIONS (6)
  - COUGH [None]
  - HAEMOPTYSIS [None]
  - CHEST PAIN [None]
  - PALPITATIONS [None]
  - PULMONARY EMBOLISM [None]
  - DIZZINESS [None]
